FAERS Safety Report 5195986-4 (Version None)
Quarter: 2006Q4

REPORT INFORMATION
  Report Type: 
  Country: None (occurrence: None)
  Receive Date: 20061227
  Receipt Date: 20061227
  Transmission Date: 20070319
  Serious: Yes (Other)
  Sender: FDA-Public Use
  Company Number: None

PATIENT
  Age: 40 Year
  Sex: Female
  Weight: 68.0396 kg

DRUGS (1)
  1. VERAPAMIL [Suspect]
     Indication: PALPITATIONS
     Dosage: 1 PO QD
     Route: 048

REACTIONS (4)
  - ANGIONEUROTIC OEDEMA [None]
  - FLUSHING [None]
  - HYPERSENSITIVITY [None]
  - PHARMACEUTICAL PRODUCT COMPLAINT [None]
